FAERS Safety Report 13710111 (Version 1)
Quarter: 2017Q2

REPORT INFORMATION
  Report Type: Spontaneous
  Country: US (occurrence: US)
  Receive Date: 20170630
  Receipt Date: 20170630
  Transmission Date: 20170830
  Serious: Yes (Hospitalization)
  Sender: FDA-Public Use
  Company Number: None

PATIENT
  Age: 55 Year
  Sex: Male

DRUGS (2)
  1. VANCOMYCIN [Suspect]
     Active Substance: VANCOMYCIN
     Indication: LOWER RESPIRATORY TRACT INFECTION BACTERIAL
     Route: 042
     Dates: start: 20170501, end: 20170506
  2. HEPARIN [Suspect]
     Active Substance: HEPARIN SODIUM
     Indication: CARDIAC VENTRICULAR THROMBOSIS
     Route: 042
     Dates: start: 20170420, end: 20170427

REACTIONS (4)
  - Immune thrombocytopenic purpura [None]
  - Heparin-induced thrombocytopenia [None]
  - Blood albumin decreased [None]
  - Liver function test increased [None]

NARRATIVE: CASE EVENT DATE: 20170504
